FAERS Safety Report 18208313 (Version 1)
Quarter: 2020Q3

REPORT INFORMATION
  Report Type: Spontaneous
  Country: US (occurrence: US)
  Receive Date: 20200828
  Receipt Date: 20200828
  Transmission Date: 20201103
  Serious: No
  Sender: FDA-Public Use
  Company Number: US-SA-2020SA230750

PATIENT

DRUGS (2)
  1. YASMIN [Concomitant]
     Active Substance: DROSPIRENONE\ETHINYL ESTRADIOL
  2. DUPIXENT [Suspect]
     Active Substance: DUPILUMAB
     Indication: ECZEMA
     Dosage: UNK UNK, QOW
     Dates: start: 201909

REACTIONS (6)
  - Eye irritation [Recovering/Resolving]
  - Foreign body sensation in eyes [Recovering/Resolving]
  - Off label use [Unknown]
  - Eye swelling [Recovering/Resolving]
  - Condition aggravated [Recovering/Resolving]
  - Ocular hyperaemia [Recovering/Resolving]

NARRATIVE: CASE EVENT DATE: 201912
